FAERS Safety Report 8179460-9 (Version None)
Quarter: 2012Q1

REPORT INFORMATION
  Report Type: 
  Country: None (occurrence: None)
  Receive Date: 20120302
  Receipt Date: 20120221
  Transmission Date: 20120608
  Serious: No
  Sender: FDA-Public Use
  Company Number: US-JNJFOC-20120212583

PATIENT
  Age: 4 Decade
  Sex: Female

DRUGS (3)
  1. INVEGA [Suspect]
     Indication: BIPOLAR DISORDER
     Route: 048
     Dates: start: 20111201
  2. INVEGA [Suspect]
     Indication: ANXIETY DISORDER
     Route: 048
     Dates: start: 20111201
  3. PRISTIQ [Concomitant]
     Route: 048

REACTIONS (1)
  - GALACTORRHOEA [None]
